FAERS Safety Report 4476698-9 (Version None)
Quarter: 2004Q4

REPORT INFORMATION
  Report Type: 
  Country: None (occurrence: None)
  Receive Date: 20041015
  Receipt Date: 20041015
  Transmission Date: 20050328
  Serious: Yes (Hospitalization)
  Sender: FDA-Public Use
  Company Number: None

PATIENT
  Age: 62 Year
  Sex: Male
  Weight: 76.6 kg

DRUGS (8)
  1. LISINOPRIL [Suspect]
     Indication: BLOOD PRESSURE
     Dosage: 5 MG QD ORAL
     Route: 048
  2. TOPIRMATE [Concomitant]
  3. MIRTAZAPINE [Concomitant]
  4. GEMFIBROZIL [Concomitant]
  5. FELODOPINE [Concomitant]
  6. DIAZEPAM [Concomitant]
  7. ATENOLOL [Concomitant]
  8. ACETAMINOPHEN [Concomitant]

REACTIONS (1)
  - SWELLING FACE [None]
